FAERS Safety Report 12809529 (Version 1)
Quarter: 2016Q4

REPORT INFORMATION
  Report Type: Report from Study
  Country: NL (occurrence: NL)
  Receive Date: 20161005
  Receipt Date: 20161005
  Transmission Date: 20170207
  Serious: Yes (Hospitalization, Other)
  Sender: FDA-Public Use
  Company Number: NL-AMGEN-NLDSL2016134870

PATIENT
  Age: 43 Year
  Sex: Female

DRUGS (1)
  1. NEULASTA [Suspect]
     Active Substance: PEGFILGRASTIM
     Indication: NEUTROPENIA
     Dosage: 0.6 ML, Q3WK
     Route: 058

REACTIONS (5)
  - Pericarditis [Unknown]
  - Tachycardia [Unknown]
  - Fluid retention [Unknown]
  - Dehydration [Unknown]
  - Nausea [Unknown]

NARRATIVE: CASE EVENT DATE: 20160908
